FAERS Safety Report 4627026-7 (Version None)
Quarter: 2005Q2

REPORT INFORMATION
  Report Type: 
  Country: None (occurrence: None)
  Receive Date: 20050405
  Receipt Date: 20050324
  Transmission Date: 20051028
  Serious: Yes (Hospitalization)
  Sender: FDA-Public Use
  Company Number: US-BRISTOL-MYERS SQUIBB COMPANY-12912192

PATIENT
  Age: 83 Year
  Sex: Male

DRUGS (2)
  1. CEFEPIME HCL [Suspect]
     Indication: PSOAS ABSCESS
     Dates: start: 20050101, end: 20050101
  2. CEFEPIME HCL [Suspect]
     Indication: CULTURE POSITIVE
     Dates: start: 20050101, end: 20050101

REACTIONS (1)
  - PSOAS ABSCESS [None]
